FAERS Safety Report 10597775 (Version 1)
Quarter: 2014Q4

REPORT INFORMATION
  Report Type: Spontaneous
  Country: US (occurrence: None)
  Receive Date: 20141120
  Receipt Date: 20141120
  Transmission Date: 20150529
  Serious: Yes (Hospitalization)
  Sender: FDA-Public Use
  Company Number: None

PATIENT
  Age: 73 Year
  Sex: Female
  Weight: 49.9 kg

DRUGS (3)
  1. OLANZAPINE ZYDIS [Suspect]
     Active Substance: OLANZAPINE
     Indication: AGITATION
     Dosage: 5MG PRN/AS NEEDED ORAL
     Route: 048
     Dates: start: 20140110, end: 20140112
  2. QUETIAPINE 25MG [Suspect]
     Active Substance: QUETIAPINE
     Indication: BIPOLAR DISORDER
     Dosage: 1 BID, ORAL
     Route: 048
     Dates: start: 20140110, end: 20140112
  3. OLANZAPINE ZYDIS [Suspect]
     Active Substance: OLANZAPINE
     Indication: PSYCHOTIC DISORDER
     Dosage: 5MG PRN/AS NEEDED ORAL
     Route: 048
     Dates: start: 20140110, end: 20140112

REACTIONS (4)
  - Hypertension [None]
  - Mental status changes [None]
  - Neuroleptic malignant syndrome [None]
  - Tachycardia [None]

NARRATIVE: CASE EVENT DATE: 20140116
